FAERS Safety Report 11227151 (Version 1)
Quarter: 2015Q2

REPORT INFORMATION
  Report Type: Spontaneous
  Country: GB (occurrence: GB)
  Receive Date: 20150630
  Receipt Date: 20150630
  Transmission Date: 20150821
  Serious: Yes (Disabling)
  Sender: FDA-Public Use
  Company Number: GB-ACCORD-031694

PATIENT
  Age: 40 Year
  Sex: Male
  Weight: 84 kg

DRUGS (4)
  1. RAMIPRIL. [Suspect]
     Active Substance: RAMIPRIL
     Indication: PRODUCT USED FOR UNKNOWN INDICATION
     Dates: start: 20150316
  2. ACETYLSALICYLIC ACID [Concomitant]
     Active Substance: ASPIRIN
     Dates: start: 20150318
  3. LOSARTAN [Concomitant]
     Active Substance: LOSARTAN
     Dates: start: 20150526
  4. UVISTAT-L [Concomitant]
     Dosage: USE AS DIRECTED
     Dates: start: 20150316

REACTIONS (3)
  - Disorientation [Recovered/Resolved]
  - Memory impairment [Recovered/Resolved]
  - Confusional state [Recovered/Resolved]

NARRATIVE: CASE EVENT DATE: 20150526
